FAERS Safety Report 9276894 (Version 2)
Quarter: 2013Q3

REPORT INFORMATION
  Report Type: Spontaneous
  Country: JP (occurrence: None)
  Receive Date: 20130501
  Receipt Date: 20130802
  Transmission Date: 20140515
  Serious: Yes (Hospitalization)
  Sender: FDA-Public Use
  Company Number: TCI2013A02344

PATIENT
  Age: 47 Year
  Sex: Female

DRUGS (2)
  1. LAMPION [Suspect]
     Indication: HELICOBACTER INFECTION
     Dosage: 0.5 CARD
     Route: 048
     Dates: start: 20130412, end: 20130412
  2. LAMPION [Suspect]
     Indication: DUODENAL ULCER
     Dosage: 0.5 CARD
     Route: 048
     Dates: start: 20130412, end: 20130412

REACTIONS (2)
  - Enterocolitis haemorrhagic [None]
  - Aphagia [None]
